FAERS Safety Report 20012611 (Version 1)
Quarter: 2021Q4

REPORT INFORMATION
  Report Type: Spontaneous
  Country: US (occurrence: US)
  Receive Date: 20211029
  Receipt Date: 20211029
  Transmission Date: 20220303
  Serious: No
  Sender: FDA-Public Use
  Company Number: US-BAYER-2021A233110

PATIENT
  Age: 9 Year
  Sex: Male

DRUGS (1)
  1. ALEVE PM [Suspect]
     Active Substance: DIPHENHYDRAMINE HYDROCHLORIDE\NAPROXEN SODIUM
     Indication: Anxiety
     Dosage: 1 DF
     Route: 048
     Dates: start: 20211018, end: 20211018

REACTIONS (3)
  - Agitation [Unknown]
  - Product use issue [None]
  - Confusional state [Unknown]

NARRATIVE: CASE EVENT DATE: 20211018
